FAERS Safety Report 16098308 (Version 1)
Quarter: 2019Q1

REPORT INFORMATION
  Report Type: Spontaneous
  Country: US (occurrence: US)
  Receive Date: 20190321
  Receipt Date: 20190321
  Transmission Date: 20190418
  Serious: No
  Sender: FDA-Public Use
  Company Number: US-TEVA-2019-US-1016046

PATIENT
  Age: 30 Year
  Sex: Female

DRUGS (1)
  1. BUPRENORPHINE TRANSDERMAL PATCH 15 MCG/HR TEVA [Suspect]
     Active Substance: BUPRENORPHINE
     Dosage: STRENGTH: 15MCG/HR
     Route: 062
     Dates: start: 201902

REACTIONS (4)
  - Application site vesicles [Unknown]
  - Product adhesion issue [Unknown]
  - Device leakage [Unknown]
  - Furuncle [Unknown]

NARRATIVE: CASE EVENT DATE: 201902
